FAERS Safety Report 9418713 (Version 1)
Quarter: 2013Q3

REPORT INFORMATION
  Report Type: Spontaneous
  Country: US (occurrence: US)
  Receive Date: 20130725
  Receipt Date: 20130725
  Transmission Date: 20140515
  Serious: Yes (Other)
  Sender: FDA-Public Use
  Company Number: US-ASTRAZENECA-2013SE52466

PATIENT
  Age: 83 Year
  Sex: Female
  Weight: 81.6 kg

DRUGS (9)
  1. PRILOSEC [Suspect]
     Indication: NAUSEA
     Route: 048
     Dates: start: 2008
  2. PRILOSEC [Suspect]
     Indication: NAUSEA
     Route: 048
     Dates: start: 2013, end: 2013
  3. PRILOSEC [Suspect]
     Indication: NAUSEA
     Route: 048
     Dates: start: 201307, end: 201307
  4. PRILOSEC OTC [Suspect]
     Indication: NAUSEA
     Route: 048
  5. CRESTOR [Suspect]
     Indication: BLOOD CHOLESTEROL ABNORMAL
     Route: 048
  6. DIOVAN [Concomitant]
     Indication: HYPERTENSION
     Route: 048
  7. DIOVAN [Concomitant]
     Indication: CARDIAC DISORDER
     Route: 048
  8. LOPRESSOR [Concomitant]
     Indication: CARDIAC DISORDER
     Route: 048
  9. SYNTHROID [Concomitant]
     Indication: THYROID DISORDER
     Route: 048

REACTIONS (5)
  - Glaucoma [Unknown]
  - Abdominal pain upper [Unknown]
  - Extra dose administered [Recovered/Resolved]
  - Off label use [Unknown]
  - Intentional drug misuse [Recovered/Resolved]
